FAERS Safety Report 7701936-6 (Version None)
Quarter: 2011Q3

REPORT INFORMATION
  Report Type: 
  Country: None (occurrence: None)
  Receive Date: 20110822
  Receipt Date: 20110812
  Transmission Date: 20111222
  Serious: No
  Sender: FDA-Public Use
  Company Number: US-ROXANE LABORATORIES, INC.-2011-RO-01176RO

PATIENT
  Age: 83 Year
  Sex: Female

DRUGS (1)
  1. PREDNISONE [Suspect]
     Indication: ANAEMIA

REACTIONS (3)
  - SWELLING FACE [None]
  - IRRITABILITY [None]
  - OEDEMA PERIPHERAL [None]
